APPROVED DRUG PRODUCT: PLASMA-LYTE R IN PLASTIC CONTAINER
Active Ingredient: CALCIUM CHLORIDE; MAGNESIUM CHLORIDE; POTASSIUM CHLORIDE; SODIUM ACETATE; SODIUM CHLORIDE; SODIUM LACTATE
Strength: 36.8MG/100ML;30.5MG/100ML;74.6MG/100ML;640MG/100ML;496MG/100ML;89.6MG/100ML
Dosage Form/Route: INJECTABLE;INJECTION
Application: N017438 | Product #001
Applicant: BAXTER HEALTHCARE CORP
Approved: Approved Prior to Jan 1, 1982 | RLD: No | RS: No | Type: DISCN